FAERS Safety Report 13425812 (Version 1)
Quarter: 2017Q2

REPORT INFORMATION
  Report Type: Spontaneous
  Country: US (occurrence: US)
  Receive Date: 20170410
  Receipt Date: 20170410
  Transmission Date: 20170830
  Serious: No
  Sender: FDA-Public Use
  Company Number: None

PATIENT
  Age: 8 Year
  Sex: Male
  Weight: 27.67 kg

DRUGS (1)
  1. CHLORHEXIDINE [Suspect]
     Active Substance: CHLORHEXIDINE
     Indication: PREOPERATIVE CARE
     Route: 061
     Dates: start: 20170324

REACTIONS (3)
  - Pain [None]
  - Hypersensitivity [None]
  - Rash pruritic [None]

NARRATIVE: CASE EVENT DATE: 20170324
